FAERS Safety Report 19862066 (Version 1)
Quarter: 2021Q3

REPORT INFORMATION
  Report Type: Report from Study
  Country: BR (occurrence: BR)
  Receive Date: 20210921
  Receipt Date: 20210921
  Transmission Date: 20211014
  Serious: Yes (Life-Threatening, Hospitalization, Other)
  Sender: FDA-Public Use
  Company Number: BR-ASTRAZENECA-2021A731915

PATIENT
  Sex: Female

DRUGS (3)
  1. PIEMONT [Concomitant]
     Dosage: CONTINUOUSLY
     Dates: start: 2017
  2. PRELONE [Concomitant]
     Active Substance: PREDNISOLONE
     Dosage: CONTINUOUSLY
     Dates: start: 2017
  3. SYMBICORT [Suspect]
     Active Substance: BUDESONIDE\FORMOTEROL FUMARATE DIHYDRATE
     Dosage: CONTINUOUSLY
     Route: 055
     Dates: start: 2017

REACTIONS (1)
  - Asthmatic crisis [Unknown]

NARRATIVE: CASE EVENT DATE: 202007
